FAERS Safety Report 15726522 (Version 2)
Quarter: 2019Q4

REPORT INFORMATION
  Report Type: Spontaneous
  Country: US (occurrence: US)
  Receive Date: 20181217
  Receipt Date: 20191121
  Transmission Date: 20200122
  Serious: Yes (Other)
  Sender: FDA-Public Use
  Company Number: US-NOVOPROD-625374

PATIENT
  Sex: Male

DRUGS (4)
  1. METFORMIN [Concomitant]
     Active Substance: METFORMIN HYDROCHLORIDE
     Indication: PRODUCT USED FOR UNKNOWN INDICATION
     Dosage: UNK
  2. LEVEMIR [Suspect]
     Active Substance: INSULIN DETEMIR
     Indication: TYPE 2 DIABETES MELLITUS
     Dosage: 70 U, QD AT BEDTIME
     Route: 058
     Dates: start: 2014
  3. NOVOLOG [Suspect]
     Active Substance: INSULIN ASPART
     Indication: TYPE 2 DIABETES MELLITUS
     Dosage: 10 U IN THE MORNING, 10 U AT LUNCH, 16 U AT DINNER
     Route: 058
     Dates: start: 2013
  4. NOVOLOG [Suspect]
     Active Substance: INSULIN ASPART
     Dosage: 90 U, UNK
     Route: 058
     Dates: start: 2016

REACTIONS (3)
  - Incorrect dose administered [Unknown]
  - Wrong product administered [Unknown]
  - Hypoglycaemic coma [Recovered/Resolved]

NARRATIVE: CASE EVENT DATE: 2016
